FAERS Safety Report 9646102 (Version 2)
Quarter: 2014Q1

REPORT INFORMATION
  Report Type: Spontaneous
  Country: US (occurrence: None)
  Receive Date: 20131023
  Receipt Date: 20140113
  Transmission Date: 20141002
  Serious: Yes (Hospitalization)
  Sender: FDA-Public Use
  Company Number: 2013-US-002020

PATIENT
  Age: 58 Year
  Sex: Female
  Weight: 64.4 kg

DRUGS (10)
  1. XYREM [Suspect]
     Indication: CATAPLEXY
     Route: 048
     Dates: start: 200308, end: 200312
  2. XYREM [Suspect]
     Indication: NARCOLEPSY
     Route: 048
     Dates: start: 200308, end: 200312
  3. ADDERALL (AMFETAMINE ASPARTATE, AMFETAMINE SULFATE, DEXAMFETAMINE SACCHARATE, DEXAMFETAMINE SULFATE) [Concomitant]
  4. PROVIGIL (MODAFINIL) [Concomitant]
  5. CYMBALTA [Concomitant]
  6. SYNTHROID (LEVOTHYROXINE SODIUM) [Concomitant]
  7. REQUIP (ROPINIROLE HYDROCHLORIDE) [Concomitant]
  8. ADVAIR (FLUTICASONE PROPIONATE, SALMETEROL XINAFOATE) [Concomitant]
  9. ALBUTEROL (SALMETEROL SULFATE) [Concomitant]
  10. FLUTICASONE (FLUTICASONE PROPIONATE) [Concomitant]

REACTIONS (16)
  - Resuscitation [None]
  - Endotracheal intubation [None]
  - Mitral valve prolapse [None]
  - Head injury [None]
  - Injury [None]
  - Peripheral vascular disorder [None]
  - Syncope [None]
  - Contusion [None]
  - Post-traumatic stress disorder [None]
  - Gastrooesophageal reflux disease [None]
  - Unevaluable event [None]
  - Fall [None]
  - Tremor [None]
  - Respiratory failure [None]
  - Loss of consciousness [None]
  - Blood potassium decreased [None]
